FAERS Safety Report 16899507 (Version 1)
Quarter: 2019Q4

REPORT INFORMATION
  Report Type: Other
  Country: BE (occurrence: BE)
  Receive Date: 20191009
  Receipt Date: 20191009
  Transmission Date: 20200122
  Serious: Yes (Life-Threatening, Hospitalization, Congenital Anomaly, Other)
  Sender: FDA-Public Use
  Company Number: BE-APOTEX-2019AP022843

PATIENT
  Age: 20 Year
  Sex: Male
  Weight: 105 kg

DRUGS (14)
  1. LISINOPRIL. [Concomitant]
     Active Substance: LISINOPRIL
     Indication: SURGERY
     Dosage: 100 MG, UNK,(LISINOPRIL 2% ; IN TOTAL)
     Route: 042
     Dates: start: 20190311, end: 20190311
  2. TARADYL [Concomitant]
     Active Substance: KETOROLAC TROMETHAMINE
     Indication: ANALGESIC THERAPY
     Dosage: 30 MG, UNK,IN TOTAL
     Route: 042
     Dates: start: 20190311, end: 20190311
  3. CATAPRESSAN                        /00171101/ [Concomitant]
     Active Substance: CLONIDINE
     Indication: PRODUCT USED FOR UNKNOWN INDICATION
     Dosage: 300 ?G, UNK, (IN TOTAL)
     Route: 042
     Dates: start: 20190311, end: 20190311
  4. PROPOLIPID [Concomitant]
     Active Substance: PROPOFOL
     Indication: SURGERY
  5. IBUPROFEN. [Suspect]
     Active Substance: IBUPROFEN
     Indication: ANALGESIC THERAPY
     Dosage: 3 DF, QD
     Route: 048
     Dates: start: 20190311, end: 20190314
  6. LITICAN                            /00690801/ [Concomitant]
     Active Substance: ALIZAPRIDE
     Indication: NAUSEA
     Dosage: 50 MG, UNK,(IN TOATL)
     Route: 042
     Dates: start: 20190311, end: 20190311
  7. PROPOLIPID [Concomitant]
     Active Substance: PROPOFOL
     Indication: INDUCTION OF ANAESTHESIA
     Dosage: 200 MG, UNK,IN TOTAL
     Route: 042
     Dates: start: 20190311, end: 20190311
  8. CEFAZOLINE                         /00288501/ [Concomitant]
     Active Substance: CEFAZOLIN
     Indication: ANTIBIOTIC PROPHYLAXIS
     Dosage: 2 G, UNK,(IN TOTAL)
     Route: 042
     Dates: start: 20190311, end: 20190311
  9. KETAMINE [Concomitant]
     Active Substance: KETAMINE
     Indication: SURGERY
     Dosage: 100 MG, UNK,IN TOTAL
     Route: 042
     Dates: start: 20190311, end: 20190311
  10. SEVORANE [Suspect]
     Active Substance: SEVOFLURANE
     Indication: GENERAL ANAESTHESIA
     Dosage: 40 ML, UNK,(IN TOTAL) (INHALATION)
     Route: 055
     Dates: start: 20190311, end: 20190311
  11. ACETAMINOPHEN. [Suspect]
     Active Substance: ACETAMINOPHEN
     Indication: ANALGESIC THERAPY
     Dosage: 2 G, QD
     Route: 048
     Dates: start: 20190311, end: 20190314
  12. DEXAMETHASONE                      /00016002/ [Concomitant]
     Active Substance: DEXAMETHASONE SODIUM PHOSPHATE
     Indication: GASTROINTESTINAL DISORDER PROPHYLAXIS
     Dosage: 4 MG, UNK,IN TOTAL
     Route: 042
     Dates: start: 20190311, end: 20190311
  13. TRACRIUM [Concomitant]
     Active Substance: ATRACURIUM BESYLATE
     Indication: SURGERY
     Dosage: 50 MG, UNK,(IN TOTAL)
     Route: 042
     Dates: start: 20190311, end: 20190311
  14. PARACETAMOL [Concomitant]
     Active Substance: ACETAMINOPHEN
     Indication: PERIOPERATIVE ANALGESIA
     Dosage: 1 G, UNK,(IN TOTAL)
     Route: 042
     Dates: start: 20190311, end: 20190311

REACTIONS (8)
  - Asthenia [Recovering/Resolving]
  - Pruritus [Recovering/Resolving]
  - Acne [Recovering/Resolving]
  - Hepatic encephalopathy [Recovering/Resolving]
  - Jaundice [Recovering/Resolving]
  - Hepatitis fulminant [Recovering/Resolving]
  - Coagulopathy [Recovering/Resolving]
  - Drug hypersensitivity [Recovering/Resolving]

NARRATIVE: CASE EVENT DATE: 20190313
